FAERS Safety Report 15074634 (Version 2)
Quarter: 2019Q2

REPORT INFORMATION
  Report Type: Report from Study
  Country: None (occurrence: US)
  Receive Date: 20180627
  Receipt Date: 20190626
  Transmission Date: 20190711
  Serious: Yes (Hospitalization, Other)
  Sender: FDA-Public Use
  Company Number: US-SAOL THERAPEUTICS-2018SAO00846

PATIENT
  Age: 70 Year
  Sex: Male
  Weight: 94.79 kg

DRUGS (20)
  1. LIORESAL [Suspect]
     Active Substance: BACLOFEN
     Indication: MUSCLE SPASTICITY
     Dosage: 367 ?G, \DAY
     Route: 037
     Dates: start: 20180416
  2. LIORESAL [Suspect]
     Active Substance: BACLOFEN
     Dosage: 367 ?G, \DAY
     Route: 037
     Dates: start: 20180416
  3. LIORESAL [Suspect]
     Active Substance: BACLOFEN
     Dosage: UNK
  4. ASPIR-81 DELAYED RELEASE [Concomitant]
     Dosage: 81 MG, 1X/DAY AS DIRECTED
     Route: 048
  5. ELIQUIS [Concomitant]
     Active Substance: APIXABAN
     Dosage: 5 MG, 2X/DAY
     Route: 048
  6. STOOL SOFTENER (DOCUSATE) [Concomitant]
     Active Substance: DOCUSATE
  7. VITAMIN B12 [Concomitant]
     Active Substance: CYANOCOBALAMIN
  8. VITAMIN C [Concomitant]
     Active Substance: ASCORBIC ACID
  9. LIORESAL [Suspect]
     Active Substance: BACLOFEN
     Dosage: UNK
  10. VITAMIN D [Concomitant]
     Active Substance: VITAMIN D NOS
  11. ALLEGRA [Concomitant]
     Active Substance: FEXOFENADINE HYDROCHLORIDE
     Route: 048
  12. CARVEDILOL. [Concomitant]
     Active Substance: CARVEDILOL
     Dosage: 12.5 MG, 2X/DAY WITH MEALS
     Route: 048
  13. PRILOSEC CPDR [Concomitant]
  14. LIORESAL [Suspect]
     Active Substance: BACLOFEN
     Dosage: 343.0 UNK
     Dates: start: 20180607
  15. MULTIVITAMINS [Concomitant]
     Active Substance: VITAMINS
     Dosage: UNK
     Route: 048
  16. LIORESAL [Suspect]
     Active Substance: BACLOFEN
     Dosage: 343.1 ?G, \DAY
     Route: 037
     Dates: start: 20180612
  17. FUROSEMIDE. [Concomitant]
     Active Substance: FUROSEMIDE
     Dosage: 40 MG, 1X/DAY
     Route: 048
  18. PRAVASTATIN SODIUM. [Concomitant]
     Active Substance: PRAVASTATIN SODIUM
     Dosage: 80 MG, 1X/DAY
     Route: 048
  19. SODIUM BICARBONATE. [Concomitant]
     Active Substance: SODIUM BICARBONATE
  20. BACLOFEN. [Concomitant]
     Active Substance: BACLOFEN
     Dosage: UNK, UP TO 4X/DAY AS NEEDED
     Route: 048
     Dates: start: 20100603

REACTIONS (6)
  - Weight decreased [Unknown]
  - Device issue [Unknown]
  - Thrombosis [Unknown]
  - Device failure [Unknown]
  - Hypertonia [Unknown]
  - Muscle spasticity [Unknown]

NARRATIVE: CASE EVENT DATE: 20180516
